FAERS Safety Report 6135734-4 (Version None)
Quarter: 2009Q1

REPORT INFORMATION
  Report Type: 
  Country: None (occurrence: None)
  Receive Date: 20090327
  Receipt Date: 20090220
  Transmission Date: 20090719
  Serious: Yes (Hospitalization, Other)
  Sender: FDA-Public Use
  Company Number: US-ABBOTT-09P-163-0558611-00

PATIENT
  Sex: Male

DRUGS (2)
  1. TRICOR [Suspect]
     Indication: DRUG USE FOR UNKNOWN INDICATION
     Dates: start: 20070101
  2. LIPITOR [Suspect]
     Indication: DRUG USE FOR UNKNOWN INDICATION

REACTIONS (2)
  - GAIT DISTURBANCE [None]
  - RHABDOMYOLYSIS [None]
